FAERS Safety Report 23671565 (Version 3)
Quarter: 2024Q2

REPORT INFORMATION
  Report Type: Spontaneous
  Country: US (occurrence: US)
  Receive Date: 20240326
  Receipt Date: 20240618
  Transmission Date: 20240716
  Serious: No
  Sender: FDA-Public Use
  Company Number: US-002147023-NVSC2024US064567

PATIENT

DRUGS (1)
  1. KESIMPTA [Suspect]
     Active Substance: OFATUMUMAB
     Indication: Product used for unknown indication
     Dosage: UNK
     Route: 065

REACTIONS (7)
  - Bacterial infection [Unknown]
  - Stomatitis [Unknown]
  - Conjunctivitis [Unknown]
  - Headache [Unknown]
  - Sinusitis [Unknown]
  - Nasopharyngitis [Unknown]
  - Influenza like illness [Unknown]
